FAERS Safety Report 5420558-3 (Version None)
Quarter: 2007Q3

REPORT INFORMATION
  Report Type: 
  Country: None (occurrence: None)
  Receive Date: 20070816
  Receipt Date: 20070720
  Transmission Date: 20080115
  Serious: Yes (Hospitalization)
  Sender: FDA-Public Use
  Company Number: 6036241

PATIENT
  Age: 49 Year
  Sex: Male

DRUGS (3)
  1. FLUCONAZOLE [Suspect]
     Indication: OESOPHAGEAL CANDIDIASIS
     Dosage: 200 MG (200 MG, 1 IN 1 D) ORAL
     Route: 048
  2. SIROLIMUS(SIROLIMUS) [Suspect]
     Indication: IMMUNOSUPPRESSANT DRUG THERAPY
     Dosage: 15 MG (15 MG, 1 IN 1 D); 4 MG (4 MG, 1 IN 1 D); 3 MG (3 MG, 1 IN 1 D); 2 MG (2 MG, 1 IN 1 D)
  3. SIROLIMUS(SIROLIMUS) [Suspect]
     Indication: IMMUNOSUPPRESSANT DRUG THERAPY
     Dosage: 15 MG (15 MG, 1 IN 1 D); 4 MG (4 MG, 1 IN 1 D); 3 MG (3 MG, 1 IN 1 D); 2 MG (2 MG, 1 IN 1 D)

REACTIONS (7)
  - CARDIO-RESPIRATORY ARREST [None]
  - DRUG INTERACTION [None]
  - GENERAL PHYSICAL HEALTH DETERIORATION [None]
  - HYPERKALAEMIA [None]
  - IMMUNOSUPPRESSANT DRUG LEVEL INCREASED [None]
  - MULTI-ORGAN FAILURE [None]
  - OESOPHAGEAL CANDIDIASIS [None]
